FAERS Safety Report 7563548-7 (Version None)
Quarter: 2011Q2

REPORT INFORMATION
  Report Type: 
  Country: None (occurrence: None)
  Receive Date: 20110622
  Receipt Date: 20110607
  Transmission Date: 20111010
  Serious: Yes (Hospitalization, Other)
  Sender: FDA-Public Use
  Company Number: US-WATSON-2009-01061

PATIENT
  Sex: Female

DRUGS (9)
  1. MIRALAX [Concomitant]
     Indication: FAECES HARD
     Dosage: USES TWICE DAILY
     Route: 048
     Dates: start: 20050101
  2. CLONIDINE [Concomitant]
     Indication: HYPERTENSION
     Dosage: 2 TABLETS, QD
     Route: 048
     Dates: start: 20030101
  3. OXYCODONE HCL [Concomitant]
     Dosage: 1 TABLET EVERY 4 TO 6 HOURS PRN PAIN
     Route: 048
     Dates: start: 20081001
  4. ZANAFLEX [Concomitant]
     Indication: MUSCLE RELAXANT THERAPY
     Dosage: 3 TABLETS, QHS
     Route: 048
     Dates: start: 20070101
  5. FENTANYL-75 [Suspect]
     Indication: SPINAL COLUMN STENOSIS
     Dosage: APPLY 1 PATCH EVERY 2 DAYS
     Route: 062
     Dates: start: 20081001, end: 20081001
  6. FENTANYL-75 [Suspect]
     Indication: INTERVERTEBRAL DISC DEGENERATION
     Dosage: UNK
     Route: 062
     Dates: start: 20080701, end: 20081001
  7. BACLOFEN [Concomitant]
     Dosage: 2 TABLETS, SINGLE DOSE
     Route: 048
     Dates: start: 20081001
  8. XANAX [Concomitant]
     Dosage: 1/2 TABLET, SINGLE DOSE
     Route: 048
     Dates: start: 20081001
  9. FENTANYL-75 [Suspect]
     Indication: BACK PAIN
     Dosage: APPLY 1 PATCH EVERY 2 DAYS
     Route: 062
     Dates: start: 20081001, end: 20081001

REACTIONS (14)
  - FACIAL PAIN [None]
  - ARTHRALGIA [None]
  - UNEVALUABLE EVENT [None]
  - DYSPNOEA [None]
  - CEREBROVASCULAR ACCIDENT [None]
  - BACK PAIN [None]
  - HYPOAESTHESIA [None]
  - PAIN [None]
  - PARAESTHESIA [None]
  - HYPOAESTHESIA FACIAL [None]
  - BLOOD SODIUM DECREASED [None]
  - DRUG INEFFECTIVE [None]
  - PAIN IN EXTREMITY [None]
  - STAPHYLOCOCCAL INFECTION [None]
